FAERS Safety Report 19295779 (Version 1)
Quarter: 2021Q2

REPORT INFORMATION
  Report Type: Spontaneous
  Country: CN (occurrence: CN)
  Receive Date: 20210524
  Receipt Date: 20210524
  Transmission Date: 20210717
  Serious: Yes (Life-Threatening, Other)
  Sender: FDA-Public Use
  Company Number: CN-PFIZER INC-2021531304

PATIENT
  Age: 11 Year
  Sex: Female
  Weight: 30 kg

DRUGS (2)
  1. ZYVOX [Suspect]
     Active Substance: LINEZOLID
     Indication: PNEUMONIA
     Dosage: 0.6 G, 2X/DAY
     Route: 041
     Dates: start: 20210504, end: 20210504
  2. REMIFENTANIL HYDROCHLORIDE. [Concomitant]
     Active Substance: REMIFENTANIL HYDROCHLORIDE
     Indication: INDUCTION AND MAINTENANCE OF ANAESTHESIA
     Dosage: 2 MG, 1X/DAY
     Route: 041
     Dates: start: 20210502, end: 20210504

REACTIONS (11)
  - Dyspnoea [Recovered/Resolved]
  - Product use issue [Unknown]
  - Anaphylactic shock [Recovered/Resolved]
  - Laryngeal obstruction [Recovered/Resolved]
  - Seizure [Recovered/Resolved]
  - Rash erythematous [Recovered/Resolved]
  - Drug hypersensitivity [Recovered/Resolved]
  - Oxygen saturation decreased [Recovered/Resolved]
  - Laryngospasm [Recovered/Resolved]
  - Off label use [Unknown]
  - Muscle rigidity [Recovered/Resolved]

NARRATIVE: CASE EVENT DATE: 20210504
